FAERS Safety Report 4900039-3 (Version None)
Quarter: 2006Q1

REPORT INFORMATION
  Report Type: 
  Country: None (occurrence: None)
  Receive Date: 20060203
  Receipt Date: 20060126
  Transmission Date: 20060701
  Serious: Yes (Hospitalization, Other)
  Sender: FDA-Public Use
  Company Number: PHBS2006BR01637

PATIENT
  Age: 75 Year
  Sex: Male
  Weight: 65 kg

DRUGS (5)
  1. MANIDIPINE HYDROCHLORIDE [Concomitant]
     Dosage: 5 MG/DAY
     Route: 048
  2. MONOCORDIL [Concomitant]
     Indication: CORONARY ARTERY DISEASE
     Dosage: 40 MG, BID
     Route: 048
     Dates: start: 20010101
  3. SIMVASTATIN [Concomitant]
     Indication: BLOOD CHOLESTEROL INCREASED
     Dosage: 10 MG/DAY
     Route: 048
     Dates: start: 20020101
  4. APRESOLINE [Suspect]
     Indication: HYPERTENSION
     Dosage: 25 MG, TID
     Route: 048
     Dates: start: 20020101, end: 20051207
  5. APRESOLINE [Suspect]
     Dosage: 50 MG, TID
     Route: 048
     Dates: start: 20051207, end: 20051215

REACTIONS (14)
  - ANXIETY [None]
  - ARTHRALGIA [None]
  - BODY TEMPERATURE INCREASED [None]
  - DIZZINESS [None]
  - FLUSHING [None]
  - MIGRAINE [None]
  - MYALGIA [None]
  - PARAESTHESIA [None]
  - PULMONARY EMBOLISM [None]
  - PURPURA [None]
  - RASH [None]
  - SYSTEMIC LUPUS ERYTHEMATOSUS RASH [None]
  - VENTRICULAR FAILURE [None]
  - VERTIGO [None]
